FAERS Safety Report 15992854 (Version 1)
Quarter: 2019Q1

REPORT INFORMATION
  Report Type: Spontaneous
  Country: US (occurrence: US)
  Receive Date: 20190221
  Receipt Date: 20190221
  Transmission Date: 20190418
  Serious: No
  Sender: FDA-Public Use
  Company Number: US-UNITED THERAPEUTICS-UNT-2019-003228

PATIENT
  Sex: Male
  Weight: 58.96 kg

DRUGS (1)
  1. TYVASO [Suspect]
     Active Substance: TREPROSTINIL
     Indication: PULMONARY ARTERIAL HYPERTENSION
     Dosage: 60-120 MICROGRAMS, QID
     Dates: start: 20180419

REACTIONS (4)
  - Swelling [Unknown]
  - Off label use [Unknown]
  - Heart rate decreased [Unknown]
  - Oxygen saturation decreased [Unknown]
